FAERS Safety Report 22192171 (Version 2)
Quarter: 2023Q2

REPORT INFORMATION
  Report Type: Other
  Country: US (occurrence: US)
  Receive Date: 20230410
  Receipt Date: 20230508
  Transmission Date: 20230722
  Serious: No
  Sender: FDA-Public Use
  Company Number: US-EXELA PHARMA SCIENCES, LLC-2023EXL00005

PATIENT

DRUGS (1)
  1. AKOVAZ [Suspect]
     Active Substance: EPHEDRINE SULFATE

REACTIONS (3)
  - Product container seal issue [Not Recovered/Not Resolved]
  - Product tampering [Not Recovered/Not Resolved]
  - No adverse event [Recovered/Resolved]
